FAERS Safety Report 7114464-6 (Version None)
Quarter: 2010Q4

REPORT INFORMATION
  Report Type: 
  Country: None (occurrence: None)
  Receive Date: 20101119
  Receipt Date: 20101116
  Transmission Date: 20110411
  Serious: Yes (Other)
  Sender: FDA-Public Use
  Company Number: US-PFIZER INC-2010150856

PATIENT
  Sex: Female

DRUGS (1)
  1. CHANTIX [Suspect]
     Dosage: UNK
     Dates: start: 20080329

REACTIONS (7)
  - ANXIETY [None]
  - DEPRESSED MOOD [None]
  - EMOTIONAL DISORDER [None]
  - MENTAL DISORDER [None]
  - MOOD SWINGS [None]
  - PARANOIA [None]
  - SUICIDAL IDEATION [None]
